FAERS Safety Report 8606248-4 (Version None)
Quarter: 2012Q3

REPORT INFORMATION
  Report Type: 
  Country: None (occurrence: None)
  Receive Date: 20120820
  Receipt Date: 20120814
  Transmission Date: 20120928
  Serious: Yes (Other)
  Sender: FDA-Public Use
  Company Number: CN-ROCHE-1102262

PATIENT

DRUGS (2)
  1. GLUCOCORTICOID [Concomitant]
     Indication: IMMUNOSUPPRESSION
  2. CELLCEPT [Suspect]
     Indication: IMMUNOSUPPRESSION

REACTIONS (3)
  - ZYGOMYCOSIS [None]
  - RENAL NECROSIS [None]
  - GRAFT HAEMORRHAGE [None]
